FAERS Safety Report 8478665 (Version 4)
Quarter: 2012Q4

REPORT INFORMATION
  Report Type: 
  Country: FR (occurrence: FR)
  Receive Date: 20120327
  Receipt Date: 20121002
  Transmission Date: 20130627
  Serious: Yes (Death, Life-Threatening, Hospitalization, Other)
  Sender: FDA-Public Use
  Company Number: FR-ASTRAZENECA-2012SE19838

PATIENT
  Sex: Female

DRUGS (9)
  1. XEROQUEL [Suspect]
     Indication: PSYCHOTIC DISORDER
     Route: 048
     Dates: end: 20120312
  2. ZOPLICONE [Suspect]
     Indication: PSYCHOTIC DISORDER
     Dosage: 30 TABLETS
     Route: 048
     Dates: end: 20120312
  3. ALPRAZOLAM [Suspect]
     Indication: PSYCHOTIC DISORDER
     Route: 048
     Dates: end: 20120312
  4. LOXAPAC [Suspect]
     Indication: PSYCHOTIC DISORDER
     Route: 048
     Dates: end: 20120312
  5. LOXAPAC [Suspect]
     Indication: PSYCHOTIC DISORDER
     Dates: start: 20120314
  6. CLOPIXOL [Suspect]
     Dosage: TWO DOSAGE FORM IN 21 DAY
     Route: 030
     Dates: end: 20120312
  7. AUGMENTIN [Suspect]
     Indication: PNEUMONIA ASPIRATION
     Route: 042
     Dates: start: 20120312
  8. LEPTICUR [Suspect]
     Indication: PSYCHOTIC DISORDER
     Route: 048
     Dates: end: 20120312
  9. LOVENOX [Concomitant]
     Route: 058
     Dates: start: 20120312

REACTIONS (5)
  - Intentional overdose [Recovered/Resolved]
  - Suicide attempt [Recovered/Resolved]
  - Pulmonary embolism [Fatal]
  - Hallucination [Unknown]
  - Persecutory delusion [Unknown]
